FAERS Safety Report 24434332 (Version 2)
Quarter: 2024Q4

REPORT INFORMATION
  Report Type: Spontaneous
  Country: JP (occurrence: JP)
  Receive Date: 20241014
  Receipt Date: 20241122
  Transmission Date: 20250115
  Serious: Yes (Death)
  Sender: OTSUKA
  Company Number: JP-OTSUKA-2024_019527

PATIENT
  Age: 33 Year
  Sex: Male

DRUGS (7)
  1. ABILIFY [Suspect]
     Active Substance: ARIPIPRAZOLE
     Indication: Hallucination
     Dosage: 200MG/SHOT
     Route: 030
     Dates: start: 20230514, end: 20240410
  2. ABILIFY [Suspect]
     Active Substance: ARIPIPRAZOLE
     Indication: Paranoia
     Dosage: 200MG/SHOT
     Route: 030
     Dates: start: 20180314, end: 20190605
  3. ABILIFY [Suspect]
     Active Substance: ARIPIPRAZOLE
     Dosage: 200MG/SHOT
     Route: 030
     Dates: start: 20190904, end: 20200311
  4. ABILIFY [Suspect]
     Active Substance: ARIPIPRAZOLE
     Dosage: 200MG/SHOT
     Route: 030
     Dates: start: 20200624, end: 20210614
  5. ABILIFY [Suspect]
     Active Substance: ARIPIPRAZOLE
     Dosage: 200MG/SHOT
     Route: 030
     Dates: start: 20211028, end: 20221213
  6. DAYVIGO [Suspect]
     Active Substance: LEMBOREXANT
     Indication: Product used for unknown indication
     Dosage: 10MG/DAY
     Route: 048
     Dates: start: 20230621, end: 20240410
  7. FLUNITRAZEPAM [Suspect]
     Active Substance: FLUNITRAZEPAM
     Indication: Product used for unknown indication
     Dosage: 1MG/DAY
     Route: 048
     Dates: start: 20240313, end: 20240410

REACTIONS (1)
  - Fall [Fatal]

NARRATIVE: CASE EVENT DATE: 20240416
